FAERS Safety Report 13547446 (Version 2)
Quarter: 2017Q2

REPORT INFORMATION
  Report Type: Report from Study
  Country: US (occurrence: US)
  Receive Date: 20170515
  Receipt Date: 20170518
  Transmission Date: 20170830
  Serious: Yes (Other)
  Sender: FDA-Public Use
  Company Number: US-BRISTOL-MYERS SQUIBB COMPANY-BMS-2017-041153

PATIENT
  Age: 68 Year
  Sex: Male

DRUGS (4)
  1. IPILIMUMAB [Suspect]
     Active Substance: IPILIMUMAB
     Indication: MALIGNANT MELANOMA
     Dosage: 357 MG, UNK
     Route: 065
     Dates: start: 20150605
  2. IPILIMUMAB [Suspect]
     Active Substance: IPILIMUMAB
     Indication: PRODUCT USED FOR UNKNOWN INDICATION
     Dosage: 357 UNK, UNK
     Route: 065
     Dates: start: 20150724
  3. BEVACIZUMAB [Suspect]
     Active Substance: BEVACIZUMAB
     Indication: PRODUCT USED FOR UNKNOWN INDICATION
     Dosage: 1785 UNK, UNK
     Route: 065
     Dates: start: 20150724
  4. BEVACIZUMAB [Suspect]
     Active Substance: BEVACIZUMAB
     Indication: MALIGNANT MELANOMA
     Dosage: 1785 MG, UNK
     Route: 065
     Dates: start: 20150605

REACTIONS (5)
  - Drain removal [Unknown]
  - Hypertension [Unknown]
  - Lipase increased [Unknown]
  - White blood cell count increased [Unknown]
  - Skin infection [Unknown]

NARRATIVE: CASE EVENT DATE: 20160114
